FAERS Safety Report 23482965 (Version 1)
Quarter: 2024Q1

REPORT INFORMATION
  Report Type: Spontaneous
  Country: US (occurrence: None)
  Receive Date: 20240204
  Receipt Date: 20240204
  Transmission Date: 20240410
  Serious: Yes (Disabling, Other)
  Sender: FDA-Public Use
  Company Number: None

PATIENT
  Sex: Female

DRUGS (1)
  1. SERTRALINE HYDROCHLORIDE [Suspect]
     Active Substance: SERTRALINE HYDROCHLORIDE
     Dosage: FREQUENCY : DAILY;?
     Route: 048

REACTIONS (14)
  - Suicidal ideation [None]
  - Panic attack [None]
  - Anxiety [None]
  - Obsessive-compulsive disorder [None]
  - Multiple allergies [None]
  - Histamine abnormal [None]
  - Headache [None]
  - Disorientation [None]
  - Derealisation [None]
  - Gastrooesophageal reflux disease [None]
  - Insomnia [None]
  - Gastrointestinal disorder [None]
  - Visual impairment [None]
  - Impaired quality of life [None]
